FAERS Safety Report 5107606-5 (Version None)
Quarter: 2006Q3

REPORT INFORMATION
  Report Type: 
  Country: None (occurrence: None)
  Receive Date: 20060913
  Receipt Date: 20060913
  Transmission Date: 20061208
  Serious: Yes (Hospitalization)
  Sender: FDA-Public Use
  Company Number: None

PATIENT
  Sex: Male

DRUGS (10)
  1. WARFARIN 5 MG [Suspect]
     Indication: PERIPHERAL VASCULAR DISORDER
     Dosage: 5 MG ONCE PO
     Route: 048
     Dates: start: 20060228, end: 20060228
  2. ASPIRIN [Concomitant]
  3. DIPHENHYDRAMINE HCL [Concomitant]
  4. DOCUSATE [Concomitant]
  5. FELODIPINE [Concomitant]
  6. GATIFLOXACIN [Concomitant]
  7. METOPROLOL [Concomitant]
  8. NICOTINE [Concomitant]
  9. OXYCODONE AND ACETAMINOPHEN [Concomitant]
  10. SIMVASTATIN [Concomitant]

REACTIONS (2)
  - HAEMATURIA [None]
  - POST PROCEDURAL COMPLICATION [None]
